FAERS Safety Report 21001975 (Version 1)
Quarter: 2022Q2

REPORT INFORMATION
  Report Type: Spontaneous
  Country: PE (occurrence: PE)
  Receive Date: 20220624
  Receipt Date: 20220624
  Transmission Date: 20220721
  Serious: Yes (Other)
  Sender: FDA-Public Use
  Company Number: PE-SUN PHARMACEUTICAL INDUSTRIES LTD-2022R1-340800

PATIENT
  Age: 58 Year
  Sex: Female

DRUGS (3)
  1. MIRTAZAPINE [Suspect]
     Active Substance: MIRTAZAPINE
     Indication: Suicidal ideation
     Dosage: 30 MILLIGRAM, DAILY
     Route: 065
     Dates: start: 20190725, end: 20190809
  2. SERTRALINE [Concomitant]
     Active Substance: SERTRALINE HYDROCHLORIDE
     Indication: Suicidal ideation
     Dosage: 50 MILLIGRAM, DAILY
     Route: 065
  3. SERTRALINE [Concomitant]
     Active Substance: SERTRALINE HYDROCHLORIDE
     Dosage: 100 MILLIGRAM, DAILY
     Route: 065
     Dates: start: 20190725, end: 20190809

REACTIONS (1)
  - Drug-induced liver injury [Recovered/Resolved]
